APPROVED DRUG PRODUCT: OXAZEPAM
Active Ingredient: OXAZEPAM
Strength: 15MG
Dosage Form/Route: CAPSULE;ORAL
Application: A218261 | Product #002 | TE Code: AB
Applicant: LEADING PHARMA LLC
Approved: Mar 3, 2025 | RLD: No | RS: No | Type: RX